FAERS Safety Report 4868961-4 (Version None)
Quarter: 2005Q4

REPORT INFORMATION
  Report Type: 
  Country: None (occurrence: None)
  Receive Date: 20051223
  Receipt Date: 20051215
  Transmission Date: 20060501
  Serious: Yes (Death, Hospitalization, Other)
  Sender: FDA-Public Use
  Company Number: 2005151393

PATIENT
  Age: 76 Year
  Sex: Female
  Weight: 48 kg

DRUGS (6)
  1. SOLU-MEDROL [Suspect]
     Indication: DYSPNOEA
     Dosage: 250 MG (250 MG, 1 D), INTRAVENOUS
     Route: 042
     Dates: start: 20050620, end: 20051102
  2. SOLU-MEDROL [Suspect]
     Indication: LYMPHOEDEMA
     Dosage: 250 MG (250 MG, 1 D), INTRAVENOUS
     Route: 042
     Dates: start: 20050620, end: 20051102
  3. VITAMINS W/AMINO ACIDS (AMINO ACIDS NOS, VITAMINS NOS) [Concomitant]
  4. ELECTROLYTES WITH CARBOHYDRATES (ELECTROLYTES WITH CARBOHYDRATES) [Concomitant]
  5. CODEINE PHOSPHATE (CODEINE PHOSPHATE) [Concomitant]
  6. SULPERAZON (CEFOPERAZONE, SULBACTAM) [Concomitant]

REACTIONS (3)
  - LOSS OF CONSCIOUSNESS [None]
  - LUNG CARCINOMA CELL TYPE UNSPECIFIED RECURRENT [None]
  - METASTASES TO PLEURA [None]
